FAERS Safety Report 25874533 (Version 2)
Quarter: 2025Q4

REPORT INFORMATION
  Report Type: Spontaneous
  Country: US (occurrence: US)
  Receive Date: 20251002
  Receipt Date: 20251030
  Transmission Date: 20260118
  Serious: No
  Sender: PFIZER
  Company Number: US-PFIZER INC-202500192572

PATIENT
  Sex: Female
  Weight: 88 kg

DRUGS (7)
  1. EPINEPHRINE\LIDOCAINE HYDROCHLORIDE [Suspect]
     Active Substance: EPINEPHRINE\LIDOCAINE HYDROCHLORIDE
     Indication: Local anaesthesia
     Dosage: 25.5 ML, BUFFERED WITH SODIUM BICARBONATE, 20 ML PRE PROCEDURE, 5.5 ML DURING PROCESURE (STRENGTH: 1
     Route: 023
     Dates: start: 20250925, end: 20250925
  2. BUPROPION [Concomitant]
     Active Substance: BUPROPION
     Dosage: 300 MG, DAILY
  3. ESTRADIOL [Concomitant]
     Active Substance: ESTRADIOL
     Dosage: 0.1 MG/G, DAILY
  4. LISINOPRIL [Concomitant]
     Active Substance: LISINOPRIL
     Dosage: 10 MG, DAILY
  5. OMEPRAZOLE [Concomitant]
     Active Substance: OMEPRAZOLE
     Dosage: 20 MG, DAILY DELAYED RELEASE
  6. APPLE CIDER VINEGAR [CYANOCOBALAMIN;FOLIC ACID;MALUS SPP. VINEGAR EXTR [Concomitant]
     Dosage: 500 MG, DAILY
  7. APPLE CIDER VINEGAR [CYANOCOBALAMIN;FOLIC ACID;MALUS SPP. VINEGAR EXTR [Concomitant]
     Dosage: 1000 MG, DAILY

REACTIONS (3)
  - Therapeutic product effect incomplete [Recovered/Resolved]
  - Pain [Recovered/Resolved]
  - Procedural haemorrhage [Recovered/Resolved]

NARRATIVE: CASE EVENT DATE: 20250925
